FAERS Safety Report 4380821-4 (Version None)
Quarter: 2004Q2

REPORT INFORMATION
  Report Type: 
  Country: None (occurrence: None)
  Receive Date: 20040616
  Receipt Date: 20040525
  Transmission Date: 20050107
  Serious: Yes (Other)
  Sender: FDA-Public Use
  Company Number: EWC040539390

PATIENT
  Age: 72 Year
  Sex: Male

DRUGS (2)
  1. PERMAX [Suspect]
     Indication: PARKINSON'S DISEASE
     Dosage: 0.5 MG/3 DAY
     Dates: start: 20000101, end: 20030101
  2. PROLOPA [Concomitant]

REACTIONS (3)
  - DILATATION VENTRICULAR [None]
  - HYDROCELE [None]
  - MITRAL VALVE INCOMPETENCE [None]
